FAERS Safety Report 8990557 (Version 1)
Quarter: 2012Q4

REPORT INFORMATION
  Report Type: Report from Study
  Country: CA (occurrence: CA)
  Receive Date: 20121228
  Receipt Date: 20121228
  Transmission Date: 20130627
  Serious: Yes (Other)
  Sender: FDA-Public Use
  Company Number: CA-ROCHE-1172457

PATIENT
  Sex: Female
  Weight: 55.06 kg

DRUGS (1)
  1. OMALIZUMAB [Suspect]
     Indication: ASTHMA
     Dosage: 375 mg, UNK
     Route: 058
     Dates: start: 20060807

REACTIONS (7)
  - Polyarthritis [Not Recovered/Not Resolved]
  - Polymyalgia rheumatica [Unknown]
  - Chest discomfort [Unknown]
  - Chest pain [Unknown]
  - Hyperhidrosis [Unknown]
  - Productive cough [Unknown]
  - Fatigue [Unknown]
